FAERS Safety Report 15762507 (Version 1)
Quarter: 2018Q4

REPORT INFORMATION
  Report Type: Spontaneous
  Country: FR (occurrence: FR)
  Receive Date: 20181226
  Receipt Date: 20181226
  Transmission Date: 20190205
  Serious: Yes (Life-Threatening, Other)
  Sender: FDA-Public Use
  Company Number: FR-PFIZER INC-2018521700

PATIENT
  Age: 67 Year
  Sex: Female
  Weight: 53 kg

DRUGS (6)
  1. AVASTIN [Suspect]
     Active Substance: BEVACIZUMAB
     Indication: OVARIAN EPITHELIAL CANCER
     Dosage: 800 MG, SINGLE (1 COURSE)
     Route: 041
     Dates: start: 20181112, end: 20181112
  2. HYDROCORTISONE UPJOHN [Suspect]
     Active Substance: HYDROCORTISONE
     Indication: ERYTHEMA
     Dosage: UNK
     Route: 041
     Dates: start: 20181112, end: 20181112
  3. ONDANSETRON ACCORD [Suspect]
     Active Substance: ONDANSETRON
     Indication: PROPHYLAXIS OF NAUSEA AND VOMITING
     Dosage: 8 MG, SINGLE (1 COURSE)
     Route: 041
     Dates: start: 20181112, end: 20181112
  4. SOLU-MEDROL [Suspect]
     Active Substance: METHYLPREDNISOLONE SODIUM SUCCINATE
     Indication: PROPHYLAXIS
     Dosage: 120 MG, SINGLE (1 COURSE)
     Route: 041
     Dates: start: 20181112, end: 20181112
  5. CARBOPLATINE HOSPIRA [Suspect]
     Active Substance: CARBOPLATIN
     Indication: OVARIAN EPITHELIAL CANCER
     Dosage: 57.5 MG, SINGLE (1 COURSE)
     Route: 041
     Dates: start: 20181112, end: 20181112
  6. POLARAMINE [Suspect]
     Active Substance: DEXCHLORPHENIRAMINE MALEATE
     Indication: ERYTHEMA
     Dosage: 5 MG, SINGLE (1 COURSE)
     Route: 041
     Dates: start: 20181112, end: 20181112

REACTIONS (3)
  - Erythema [Recovered/Resolved]
  - Hypotension [Recovered/Resolved]
  - Hypothermia [Recovered/Resolved]

NARRATIVE: CASE EVENT DATE: 20181112
